FAERS Safety Report 4777290-9 (Version None)
Quarter: 2005Q3

REPORT INFORMATION
  Report Type: 
  Country: None (occurrence: None)
  Receive Date: 20050923
  Receipt Date: 20050802
  Transmission Date: 20060218
  Serious: Yes (Other)
  Sender: FDA-Public Use
  Company Number: PHEH2005US08599

PATIENT
  Age: 47 Year
  Sex: Female

DRUGS (1)
  1. ZOMETA [Suspect]
     Indication: BREAST CANCER RECURRENT

REACTIONS (8)
  - BONE LESION [None]
  - GINGIVAL INFECTION [None]
  - GINGIVITIS [None]
  - OEDEMA MOUTH [None]
  - ORAL PAIN [None]
  - SOFT TISSUE INFECTION [None]
  - TOOTH ABSCESS [None]
  - TOOTHACHE [None]
